FAERS Safety Report 10017478 (Version 1)
Quarter: 2014Q1

REPORT INFORMATION
  Report Type: Spontaneous
  Country: US (occurrence: None)
  Receive Date: 20140313
  Receipt Date: 20140313
  Transmission Date: 20141002
  Serious: Yes (Other)
  Sender: FDA-Public Use
  Company Number: None

PATIENT
  Sex: 0

DRUGS (3)
  1. LIDODERM PATCH [Suspect]
  2. CIALIS [Concomitant]
  3. ASPIRIN [Concomitant]

REACTIONS (4)
  - Drug ineffective [None]
  - Product substitution issue [None]
  - Product adhesion issue [None]
  - Product physical issue [None]
